FAERS Safety Report 18387096 (Version 2)
Quarter: 2020Q4

REPORT INFORMATION
  Report Type: Spontaneous
  Country: US (occurrence: US)
  Receive Date: 20201015
  Receipt Date: 20201120
  Transmission Date: 20210114
  Serious: Yes (Other)
  Sender: FDA-Public Use
  Company Number: US-PFIZER INC-2020164277

PATIENT
  Age: 59 Year
  Sex: Male
  Weight: 86.18 kg

DRUGS (2)
  1. CHANTIX [Suspect]
     Active Substance: VARENICLINE TARTRATE
     Indication: SMOKING CESSATION THERAPY
     Dosage: 1 MG, 2X/DAY
     Dates: start: 202002
  2. CHANTIX [Suspect]
     Active Substance: VARENICLINE TARTRATE
     Indication: SMOKING CESSATION THERAPY

REACTIONS (5)
  - Withdrawal syndrome [Unknown]
  - Polycythaemia vera [Unknown]
  - Blood count abnormal [Unknown]
  - Leukaemia [Unknown]
  - Intentional product misuse [Unknown]
